FAERS Safety Report 7227630-6 (Version None)
Quarter: 2011Q1

REPORT INFORMATION
  Report Type: 
  Country: None (occurrence: None)
  Receive Date: 20110114
  Receipt Date: 20100525
  Transmission Date: 20110831
  Serious: No
  Sender: FDA-Public Use
  Company Number: US-PFIZER INC-2010066432

PATIENT
  Sex: Male
  Weight: 70 kg

DRUGS (14)
  1. CRESTOR [Concomitant]
     Indication: CARDIAC DISORDER
     Dosage: UNK
  2. EFFEXOR XR [Concomitant]
     Indication: DEPRESSION
     Dosage: 150 MG, 1X/DAY
  3. ACETYLSALICYLIC ACID [Concomitant]
     Indication: CARDIAC DISORDER
     Dosage: 81 MG, 1X/DAY
  4. VITAMIN D [Concomitant]
     Dosage: 50000 UNITS, ONCE EVERY TWO WEEKS
  5. VITAMIN B COMPLEX [Concomitant]
     Dosage: UNK
  6. AMANTADINE HCL [Concomitant]
     Indication: PARKINSON'S DISEASE
     Dosage: 100 MG, 2X/DAY
  7. PLAVIX [Concomitant]
     Indication: CARDIAC DISORDER
     Dosage: 75 MG, 1X/DAY
  8. VESICARE [Concomitant]
     Indication: POLLAKIURIA
     Dosage: 10 MG, 1X/DAY
  9. MIRAPEX [Concomitant]
     Indication: PARKINSON'S DISEASE
     Dosage: 1 MG, 3X/DAY
  10. COENZYME Q10 [Concomitant]
     Dosage: 200 MG, UNK
  11. CARDURA [Suspect]
     Indication: PROSTATIC DISORDER
     Dosage: 1 MG, DAILY
     Route: 048
     Dates: start: 20100429
  12. SPIRONOLACTONE [Concomitant]
     Indication: CARDIAC DISORDER
     Dosage: 12.5 MG, UNK
  13. METOPROLOL [Concomitant]
     Indication: CARDIAC DISORDER
     Dosage: 25 MG, 2X/DAY
  14. CARBIDOPA/MELEVODOPA HYDROCHLORIDE [Concomitant]
     Indication: PARKINSON'S DISEASE
     Dosage: 25/100 MG, 5X/DAY

REACTIONS (1)
  - DIARRHOEA [None]
